FAERS Safety Report 23352013 (Version 2)
Quarter: 2024Q1

REPORT INFORMATION
  Report Type: Spontaneous
  Country: US (occurrence: US)
  Receive Date: 20231229
  Receipt Date: 20240103
  Transmission Date: 20240410
  Serious: No
  Sender: FDA-Public Use
  Company Number: US-SANDOZ-SDZ2023US073316

PATIENT
  Sex: Female

DRUGS (1)
  1. CARTEOLOL [Suspect]
     Active Substance: CARTEOLOL
     Indication: Product used for unknown indication
     Dosage: 5 ML, BID
     Route: 065
     Dates: start: 20231222

REACTIONS (3)
  - Eye pain [Unknown]
  - Discharge [Unknown]
  - Product container issue [Unknown]
